FAERS Safety Report 5486539-9 (Version None)
Quarter: 2007Q3

REPORT INFORMATION
  Report Type: 
  Country: None (occurrence: None)
  Receive Date: 20070919
  Receipt Date: 20070515
  Transmission Date: 20080115
  Serious: No
  Sender: FDA-Public Use
  Company Number: 2007RL000209

PATIENT
  Age: 60 Year
  Sex: Male
  Weight: 92.9874 kg

DRUGS (3)
  1. OMACOR [Suspect]
     Indication: BLOOD TRIGLYCERIDES INCREASED
     Dosage: 4 GM; QD; PO
     Route: 048
     Dates: start: 20070101
  2. ATACAND [Concomitant]
  3. METOPROLOL TARTRATE [Concomitant]

REACTIONS (4)
  - BLOOD TRIGLYCERIDES INCREASED [None]
  - DIARRHOEA [None]
  - SLEEP DISORDER [None]
  - WEIGHT DECREASED [None]
